FAERS Safety Report 9252396 (Version 1)
Quarter: 2013Q2

REPORT INFORMATION
  Report Type: Report from Study
  Country: US (occurrence: US)
  Receive Date: 20130424
  Receipt Date: 20130424
  Transmission Date: 20140414
  Serious: Yes (Hospitalization)
  Sender: FDA-Public Use
  Company Number: PHEH2013US009110

PATIENT
  Age: 61 Year
  Sex: Female

DRUGS (2)
  1. MYFORTIC [Suspect]
     Indication: LIVER TRANSPLANT
     Dosage: UNK UKN, BID
     Route: 048
  2. NEORAL [Concomitant]

REACTIONS (1)
  - Renal failure [Unknown]
